FAERS Safety Report 7922333-4 (Version None)
Quarter: 2011Q4

REPORT INFORMATION
  Report Type: 
  Country: None (occurrence: None)
  Receive Date: 20111117
  Receipt Date: 20110119
  Transmission Date: 20120403
  Serious: No
  Sender: FDA-Public Use
  Company Number: US-AMGEN-USASP2011003384

PATIENT
  Age: 40 Year
  Sex: Female

DRUGS (2)
  1. LEFLUNOMIDE SANDOZ [Concomitant]
     Dates: start: 20090101
  2. ENBREL [Suspect]
     Indication: RHEUMATOID ARTHRITIS
     Dosage: 50 MG, QWK
     Dates: start: 20080801

REACTIONS (6)
  - PAIN IN EXTREMITY [None]
  - RHEUMATOID ARTHRITIS [None]
  - WEIGHT DECREASED [None]
  - INJECTION SITE PAIN [None]
  - EXOSTOSIS [None]
  - FIBROMYALGIA [None]
